FAERS Safety Report 7521449-4 (Version None)
Quarter: 2011Q2

REPORT INFORMATION
  Report Type: 
  Country: None (occurrence: None)
  Receive Date: 20110603
  Receipt Date: 20110207
  Transmission Date: 20111010
  Serious: Yes (Hospitalization)
  Sender: FDA-Public Use
  Company Number: US-BAYER-201041597NA

PATIENT
  Age: 19 Year
  Sex: Female

DRUGS (24)
  1. VALIUM [Concomitant]
     Dosage: 2 MG, PRN
     Route: 048
     Dates: start: 20091208
  2. CURCUMEN [Concomitant]
     Dosage: 500 MG, BID
     Dates: start: 20101129
  3. COUMADIN [Concomitant]
     Dosage: 2.5 MG ALTERNATE WITH 5 MG
     Dates: start: 20100312, end: 20100408
  4. VELCADE [Concomitant]
  5. ALBUTEROL SULFATE AUTOHALER [Concomitant]
     Dosage: 2-3 TIMES/DAY
     Dates: start: 20091208
  6. LORATADINE [Concomitant]
     Dosage: UNK UNK, PRN
     Dates: start: 20091208
  7. VICODIN [Concomitant]
     Dosage: 5/500 PRN
     Dates: start: 20101001
  8. NEXAVAR [Suspect]
     Indication: EWING'S SARCOMA
     Dosage: 400 MG, BID
     Route: 048
     Dates: start: 20101106, end: 20101111
  9. AMBIEN [Concomitant]
     Dosage: 10 MG, PRN
     Route: 048
     Dates: start: 20091208
  10. EMEND [Concomitant]
     Dosage: UNK
     Dates: start: 20101221
  11. TRAZODONE HCL [Concomitant]
     Dosage: 50 MG, HS
     Dates: start: 20101221
  12. IBUPROFEN [Concomitant]
     Dosage: PRN
     Dates: start: 20101129
  13. TRAMADOL HYDROCHLORIDE [Concomitant]
     Dosage: 50 MG, PRN
     Dates: start: 20101221
  14. NEXAVAR [Suspect]
     Dosage: 200 MG, QD
     Route: 048
     Dates: start: 20101112
  15. COUMADIN [Concomitant]
     Dosage: 2 MG M-W ;4 MG T-TH-F-S-S
     Dates: start: 20101221
  16. ATIVAN [Concomitant]
     Dosage: 1 MG, PRN
     Route: 048
     Dates: start: 20091208
  17. GLUTAMINE [Concomitant]
     Dosage: 5-10 MG DAILY
     Dates: start: 20091208
  18. LOVENOX [Concomitant]
  19. ZOFRAN [Concomitant]
     Dosage: 8 MG, PRN
     Route: 048
     Dates: start: 20091208
  20. BENADRYL [Concomitant]
     Dosage: PRN
     Dates: start: 20101129
  21. COUMADIN [Concomitant]
     Dosage: 2.5 MG, QD
     Dates: start: 20100409, end: 20101026
  22. COUMADIN [Concomitant]
     Dosage: 2.5 MG, QOD
     Dates: start: 20101027, end: 20101221
  23. SUDAFED 12 HOUR [Concomitant]
     Dosage: UNK, PRN
     Dates: start: 20091208
  24. CROMOLYN SODIUM [Concomitant]
     Dosage: PRN
     Dates: start: 20101001

REACTIONS (13)
  - VENA CAVA THROMBOSIS [None]
  - ORAL DISCOMFORT [None]
  - VOMITING [None]
  - SKIN WARM [None]
  - FATIGUE [None]
  - PARAESTHESIA ORAL [None]
  - ARTHRALGIA [None]
  - ERYTHEMA [None]
  - DRY SKIN [None]
  - DECREASED APPETITE [None]
  - HEADACHE [None]
  - PAIN OF SKIN [None]
  - HYPOKALAEMIA [None]
